FAERS Safety Report 13591566 (Version 1)
Quarter: 2017Q2

REPORT INFORMATION
  Report Type: Spontaneous
  Country: US (occurrence: US)
  Receive Date: 20170530
  Receipt Date: 20170530
  Transmission Date: 20170830
  Serious: Yes (Hospitalization, Other)
  Sender: FDA-Public Use
  Company Number: US-GLAXOSMITHKLINE-US2017079143

PATIENT
  Age: 51 Year
  Sex: Female

DRUGS (2)
  1. GAS-X EXTRA STRENGTH [Suspect]
     Active Substance: DIMETHICONE
     Dosage: UNK
     Dates: start: 20170521
  2. GAS-X EXTRA STRENGTH [Suspect]
     Active Substance: DIMETHICONE
     Indication: FLATULENCE
     Dosage: UNK

REACTIONS (4)
  - Hospitalisation [Unknown]
  - Eructation [Recovered/Resolved]
  - Overdose [Recovered/Resolved]
  - Therapeutic response unexpected [Unknown]
